FAERS Safety Report 19495141 (Version 1)
Quarter: 2021Q3

REPORT INFORMATION
  Report Type: Spontaneous
  Country: DE (occurrence: DE)
  Receive Date: 20210706
  Receipt Date: 20210706
  Transmission Date: 20211014
  Serious: Yes (Hospitalization)
  Sender: FDA-Public Use
  Company Number: DE-TEVA-2021-DE-1928356

PATIENT
  Age: 78 Year
  Sex: Female

DRUGS (7)
  1. JANUMET [Suspect]
     Active Substance: METFORMIN HYDROCHLORIDE\SITAGLIPTIN PHOSPHATE
     Dosage: 2 DOSAGE FORMS DAILY; 1000 | 50 MG, 1?0?1?0
     Route: 048
  2. RAMICLAIR 10MG [Concomitant]
     Dosage: 10 MILLIGRAM DAILY; 1?0?0?0
     Route: 048
  3. AMLODIPIN [Concomitant]
     Active Substance: AMLODIPINE BESYLATE
     Dosage: 5 MILLIGRAM DAILY; 1?0?0?0
     Route: 048
  4. ASS 100MG HEXAL [Concomitant]
     Dosage: 100 MILLIGRAM DAILY; 1?0?0?0
     Route: 048
  5. CIPROFLOXACIN. [Suspect]
     Active Substance: CIPROFLOXACIN
     Dosage: 500 MG, ONE TAKEN AS SELF?MEDICATION AND HAVING AN ALLERGIC REACTION
     Route: 048
  6. BISOPROLOL [Concomitant]
     Active Substance: BISOPROLOL
     Dosage: 5 MILLIGRAM DAILY; 0?0?1?0
     Route: 048
  7. ATORVASTATIN [Concomitant]
     Active Substance: ATORVASTATIN
     Dosage: 20 MILLIGRAM DAILY; 0?0?1?0
     Route: 048

REACTIONS (4)
  - Eye swelling [Recovering/Resolving]
  - Dizziness [Recovering/Resolving]
  - Eye pruritus [Recovering/Resolving]
  - Hyperglycaemia [Recovering/Resolving]
